FAERS Safety Report 7097933-7 (Version None)
Quarter: 2010Q4

REPORT INFORMATION
  Report Type: 
  Country: None (occurrence: None)
  Receive Date: 20101112
  Receipt Date: 20101101
  Transmission Date: 20110411
  Serious: Yes (Other)
  Sender: FDA-Public Use
  Company Number: GB-JNJFOC-20100907502

PATIENT
  Sex: Male
  Weight: 45 kg

DRUGS (5)
  1. CONCERTA [Suspect]
     Indication: ATTENTION DEFICIT/HYPERACTIVITY DISORDER
     Route: 048
  2. CONCERTA [Suspect]
     Route: 048
  3. MELATONIN [Suspect]
     Indication: INSOMNIA
     Route: 065
  4. MELATONIN [Suspect]
     Route: 065
  5. MELATONIN [Suspect]
     Route: 065

REACTIONS (2)
  - MADAROSIS [None]
  - WITHDRAWAL SYNDROME [None]
